FAERS Safety Report 11030841 (Version 1)
Quarter: 2015Q2

REPORT INFORMATION
  Report Type: Spontaneous
  Country: US (occurrence: US)
  Receive Date: 20150415
  Receipt Date: 20150415
  Transmission Date: 20150821
  Serious: No
  Sender: FDA-Public Use
  Company Number: US-009507513-1504USA004260

PATIENT
  Sex: Female

DRUGS (1)
  1. NEXPLANON [Suspect]
     Active Substance: ETONOGESTREL
     Dosage: 1 DF, UNK
     Route: 059
     Dates: start: 201111

REACTIONS (3)
  - Menorrhagia [Recovered/Resolved]
  - Incorrect drug administration duration [Unknown]
  - Amenorrhoea [Unknown]

NARRATIVE: CASE EVENT DATE: 201411
